FAERS Safety Report 19592025 (Version 1)
Quarter: 2021Q3

REPORT INFORMATION
  Report Type: Spontaneous
  Country: US (occurrence: US)
  Receive Date: 20210722
  Receipt Date: 20210722
  Transmission Date: 20211014
  Serious: No
  Sender: FDA-Public Use
  Company Number: US-AUROBINDO-AUR-APL-2021-013309

PATIENT

DRUGS (1)
  1. ALPRAZOLAM. [Suspect]
     Active Substance: ALPRAZOLAM
     Indication: ANXIETY
     Dosage: 8 MILLIGRAM (2 MILLIGRAM, AS NEEDED (UP TO 4 TIMES A DAY))
     Route: 065

REACTIONS (4)
  - Product substitution issue [Unknown]
  - Drug ineffective [Unknown]
  - Extra dose administered [Unknown]
  - Insomnia [Unknown]
